FAERS Safety Report 5324473-5 (Version None)
Quarter: 2007Q2

REPORT INFORMATION
  Report Type: 
  Country: None (occurrence: None)
  Receive Date: 20070514
  Receipt Date: 20070502
  Transmission Date: 20071010
  Serious: Yes (Other)
  Sender: FDA-Public Use
  Company Number: US-PFIZER INC-2006129669

PATIENT
  Sex: Male
  Weight: 84.4 kg

DRUGS (2)
  1. EXUBERA [Suspect]
     Indication: DIABETES MELLITUS
     Dates: start: 20060101, end: 20060101
  2. LANTUS [Concomitant]

REACTIONS (6)
  - CHEST DISCOMFORT [None]
  - COUGH [None]
  - DYSPNOEA [None]
  - INCREASED UPPER AIRWAY SECRETION [None]
  - PRESYNCOPE [None]
  - WHEEZING [None]
